FAERS Safety Report 9890292 (Version 1)
Quarter: 2014Q1

REPORT INFORMATION
  Report Type: Spontaneous
  Country: US (occurrence: US)
  Receive Date: 20140212
  Receipt Date: 20140212
  Transmission Date: 20141002
  Serious: Yes (Hospitalization)
  Sender: FDA-Public Use
  Company Number: US-BRISTOL-MYERS SQUIBB COMPANY-20135380

PATIENT
  Age: 68 Year
  Sex: Male
  Weight: 93 kg

DRUGS (2)
  1. COUMADIN [Suspect]
     Indication: ATRIAL FIBRILLATION
     Dosage: 1/7/14 10MG; 1/8/14 5MG; 1/9/14 5 MG; 1/10/14 7.5MG
     Route: 048
     Dates: end: 20140111
  2. ENOXAPARIN [Suspect]
     Indication: THROMBOSIS PROPHYLAXIS
     Dosage: LAST DOSE:11-JAN-2014
     Route: 058
     Dates: start: 20140107

REACTIONS (3)
  - Dyspnoea [Unknown]
  - Wheezing [Unknown]
  - Abdominal wall haematoma [Unknown]
